FAERS Safety Report 11049325 (Version 1)
Quarter: 2015Q2

REPORT INFORMATION
  Report Type: Spontaneous
  Country: CN (occurrence: CN)
  Receive Date: 20150420
  Receipt Date: 20150420
  Transmission Date: 20150821
  Serious: Yes (Other)
  Sender: FDA-Public Use
  Company Number: CN-MYLANLABS-2015M1012938

PATIENT

DRUGS (7)
  1. PREDNISOLONE. [Suspect]
     Active Substance: PREDNISOLONE
     Indication: OFF LABEL USE
     Dosage: TAPER EVERY 3D; 3MG/KG, THEN 2MG/KG
     Route: 042
  2. PREDNISOLONE. [Suspect]
     Active Substance: PREDNISOLONE
     Dosage: TAPER, 2MG/KG
     Route: 042
  3. PREDNISOLONE. [Suspect]
     Active Substance: PREDNISOLONE
     Indication: CONGENITAL ABSENCE OF BILE DUCTS
     Dosage: TAPER EVERY 3D; 4MG/KG, THEN 3MG/KG
     Route: 042
  4. CEFOPERAZONE [Concomitant]
     Active Substance: CEFOPERAZONE
     Indication: CONGENITAL ABSENCE OF BILE DUCTS
     Dosage: 50-100MG/KG/D DIVIDED EVERY 8H
     Route: 042
  5. URSODEOXYCHOLIC ACID [Concomitant]
     Active Substance: URSODIOL
     Indication: CONGENITAL ABSENCE OF BILE DUCTS
     Dosage: 20MG/KG/D FOR 12-24M
     Route: 048
  6. METRONIDAZOLE. [Concomitant]
     Active Substance: METRONIDAZOLE
     Indication: CONGENITAL ABSENCE OF BILE DUCTS
     Dosage: 15-20MG/KG/D TWICE A DAY; FOR 4W
     Route: 042
  7. CEFRADINE [Concomitant]
     Active Substance: CEPHRADINE
     Indication: CONGENITAL ABSENCE OF BILE DUCTS
     Dosage: 8-12W
     Route: 048

REACTIONS (1)
  - Gastrointestinal haemorrhage [Recovered/Resolved]
